FAERS Safety Report 14218235 (Version 1)
Quarter: 2017Q4

REPORT INFORMATION
  Report Type: Spontaneous
  Country: US (occurrence: US)
  Receive Date: 20171123
  Receipt Date: 20171123
  Transmission Date: 20180321
  Serious: No
  Sender: FDA-Public Use
  Company Number: US-009507513-1711USA002604

PATIENT
  Age: 3 Year
  Sex: Female

DRUGS (4)
  1. TACROLIMUS. [Concomitant]
     Active Substance: TACROLIMUS
     Indication: IMMUNOSUPPRESSANT DRUG THERAPY
  2. VORINOSTAT [Suspect]
     Active Substance: VORINOSTAT
     Indication: SMOOTH MUSCLE CELL NEOPLASM
     Route: 048
  3. EPSTEIN BARR VIRUS SPECIFIC T-CELLS [Suspect]
     Active Substance: INVESTIGATIONAL PRODUCT
     Indication: SMOOTH MUSCLE CELL NEOPLASM
  4. RITUXIMAB. [Concomitant]
     Active Substance: RITUXIMAB

REACTIONS (3)
  - Treatment failure [Not Recovered/Not Resolved]
  - Malignant neoplasm progression [None]
  - Smooth muscle cell neoplasm [Not Recovered/Not Resolved]
